FAERS Safety Report 22128257 (Version 1)
Quarter: 2023Q1

REPORT INFORMATION
  Report Type: Spontaneous
  Country: US (occurrence: US)
  Receive Date: 20230323
  Receipt Date: 20230323
  Transmission Date: 20230418
  Serious: No
  Sender: FDA-Public Use
  Company Number: US-ALLERGAN-2240440US

PATIENT
  Sex: Female

DRUGS (2)
  1. VRAYLAR [Suspect]
     Active Substance: CARIPRAZINE
     Indication: Bipolar disorder
     Dosage: 3 MILLIGRAM
     Route: 048
     Dates: end: 202105
  2. VRAYLAR [Suspect]
     Active Substance: CARIPRAZINE
     Dosage: 1.5 MILLIGRAM
     Route: 048
     Dates: start: 202010

REACTIONS (3)
  - Intentional product misuse [Unknown]
  - Parkinson^s disease [Unknown]
  - Dyskinesia [Unknown]
